FAERS Safety Report 14677648 (Version 1)
Quarter: 2018Q1

REPORT INFORMATION
  Report Type: Spontaneous
  Country: FR (occurrence: FR)
  Receive Date: 20180325
  Receipt Date: 20180325
  Transmission Date: 20180509
  Serious: Yes (Congenital Anomaly)
  Sender: FDA-Public Use
  Company Number: FR-ABBVIE-18S-056-2296377-00

PATIENT
  Age: 0 Day
  Sex: Female

DRUGS (4)
  1. ISENTRESS [Suspect]
     Active Substance: RALTEGRAVIR POTASSIUM
     Indication: ACQUIRED IMMUNODEFICIENCY SYNDROME
     Route: 050
     Dates: start: 20170623, end: 20171029
  2. PREZISTA [Suspect]
     Active Substance: DARUNAVIR ETHANOLATE
     Indication: ACQUIRED IMMUNODEFICIENCY SYNDROME
     Route: 050
     Dates: start: 20170123, end: 20170623
  3. NORVIR [Suspect]
     Active Substance: RITONAVIR
     Indication: ACQUIRED IMMUNODEFICIENCY SYNDROME
     Route: 048
     Dates: start: 20170123, end: 20170623
  4. TRUVADA [Suspect]
     Active Substance: EMTRICITABINE\TENOFOVIR DISOPROXIL FUMARATE
     Indication: ACQUIRED IMMUNODEFICIENCY SYNDROME
     Route: 050
     Dates: start: 20170123, end: 20171029

REACTIONS (1)
  - Congenital absence of bile ducts [Not Recovered/Not Resolved]

NARRATIVE: CASE EVENT DATE: 20171029
